FAERS Safety Report 7789366-2 (Version None)
Quarter: 2011Q3

REPORT INFORMATION
  Report Type: 
  Country: None (occurrence: None)
  Receive Date: 20110930
  Receipt Date: 20110922
  Transmission Date: 20111222
  Serious: Yes (Hospitalization, Other)
  Sender: FDA-Public Use
  Company Number: CH-GLAXOSMITHKLINE-B0751410A

PATIENT
  Age: 74 Year
  Sex: Male

DRUGS (10)
  1. MARCUMAR [Concomitant]
     Route: 048
  2. CLINDAMYCIN HCL [Suspect]
     Indication: PRODUCT USED FOR UNKNOWN INDICATION
     Dosage: 600MG THREE TIMES PER DAY
     Route: 048
     Dates: start: 20110726, end: 20110815
  3. UNKNOWN [Concomitant]
     Route: 048
     Dates: start: 20110817
  4. NORVASC [Concomitant]
     Dosage: 5MG PER DAY
     Route: 048
  5. ASPIRIN [Concomitant]
     Dosage: 100MG PER DAY
     Route: 048
  6. AUGMENTIN '125' [Suspect]
     Indication: PRODUCT USED FOR UNKNOWN INDICATION
     Dosage: 2.2G THREE TIMES PER DAY
     Route: 042
     Dates: start: 20110507, end: 20110724
  7. RAMIPRIL [Concomitant]
     Dosage: 10MG PER DAY
     Route: 048
  8. AMOXICILLIN [Suspect]
     Indication: PRODUCT USED FOR UNKNOWN INDICATION
     Dosage: 750MG THREE TIMES PER DAY
     Route: 048
     Dates: start: 20110726, end: 20110817
  9. NEXIUM [Concomitant]
     Dosage: 20MG PER DAY
     Route: 048
  10. ATORVASTATIN CALCIUM [Concomitant]
     Dosage: 20MG PER DAY
     Route: 048
     Dates: start: 20110817

REACTIONS (6)
  - BLOOD ALKALINE PHOSPHATASE INCREASED [None]
  - GAMMA-GLUTAMYLTRANSFERASE INCREASED [None]
  - BLOOD BILIRUBIN INCREASED [None]
  - ASPARTATE AMINOTRANSFERASE INCREASED [None]
  - INTERNATIONAL NORMALISED RATIO INCREASED [None]
  - ALANINE AMINOTRANSFERASE INCREASED [None]
